FAERS Safety Report 7612381-6 (Version None)
Quarter: 2011Q3

REPORT INFORMATION
  Report Type: 
  Country: None (occurrence: None)
  Receive Date: 20110716
  Receipt Date: 20110712
  Transmission Date: 20111222
  Serious: Yes (Other)
  Sender: FDA-Public Use
  Company Number: US-RB-028900-11

PATIENT
  Age: 51 Year
  Sex: Female

DRUGS (1)
  1. SUBOXONE [Suspect]
     Indication: PRODUCT USED FOR UNKNOWN INDICATION
     Dosage: DOSING INFORMATION UNKNOWN
     Route: 065
     Dates: start: 20110101, end: 20110101

REACTIONS (14)
  - SOMNOLENCE [None]
  - CRYING [None]
  - CONVULSION [None]
  - JOINT INJURY [None]
  - TACHYPHRENIA [None]
  - CONDITION AGGRAVATED [None]
  - CONSTIPATION [None]
  - INSOMNIA [None]
  - SINUSITIS [None]
  - FATIGUE [None]
  - CONTUSION [None]
  - MEMORY IMPAIRMENT [None]
  - TRANSIENT ISCHAEMIC ATTACK [None]
  - LIGAMENT RUPTURE [None]
